FAERS Safety Report 7592500-0 (Version None)
Quarter: 2011Q3

REPORT INFORMATION
  Report Type: 
  Country: None (occurrence: None)
  Receive Date: 20110706
  Receipt Date: 20110624
  Transmission Date: 20111222
  Serious: Yes (Hospitalization)
  Sender: FDA-Public Use
  Company Number: US-BAYER-2010-006780

PATIENT
  Age: 19 Year
  Sex: Female

DRUGS (7)
  1. YASMIN [Suspect]
     Indication: CONTRACEPTION
     Dosage: 1 TAB / DAY
     Dates: start: 20040101, end: 20060101
  2. BUSPIRONE HCL [Concomitant]
  3. MULTI-VITAMIN [Concomitant]
  4. DROSPIRENONE AND ETHINYL ESTRADIOL [Suspect]
     Indication: CONTRACEPTION
     Dosage: 1 TAB / DAY
     Dates: start: 20060101, end: 20091201
  5. IBUPROFEN [Concomitant]
  6. ORTHO EVRA [Concomitant]
  7. OMEPRAZOLE [Concomitant]

REACTIONS (11)
  - EMOTIONAL DISTRESS [None]
  - VOMITING [None]
  - BILIARY DYSKINESIA [None]
  - DEPRESSION [None]
  - WEIGHT FLUCTUATION [None]
  - NAUSEA [None]
  - INJURY [None]
  - NERVOUSNESS [None]
  - CHOLECYSTITIS CHRONIC [None]
  - FEAR OF DEATH [None]
  - PAIN [None]
